FAERS Safety Report 4514639-6 (Version None)
Quarter: 2004Q4

REPORT INFORMATION
  Report Type: 
  Country: None (occurrence: None)
  Receive Date: 20040927
  Receipt Date: 20040225
  Transmission Date: 20050328
  Serious: Yes (Other)
  Sender: FDA-Public Use
  Company Number: UK059124

PATIENT
  Age: 58 Year
  Sex: Female
  Weight: 83.5 kg

DRUGS (7)
  1. NEULASTA [Suspect]
     Indication: CHEMOTHERAPY
     Dosage: 6 MG, 1 IN 1 AS NECESSARY, SC
     Route: 058
     Dates: start: 20031121, end: 20031121
  2. DOXORUBICIN [Suspect]
     Dosage: 50 MG/M2, PER CHEMO REGIMEN
     Dates: start: 20031001
  3. CYCLOPHOSPHAMIDE [Suspect]
     Dosage: 1000 MG/M2, PER CHEMO REGIMEN
     Dates: start: 20031001
  4. VINCRISTINE SULFATE [Suspect]
     Dosage: 2 MG/M2, PER CHEMO REGIMEN
     Dates: start: 20031001
  5. DEXAMETHASONE [Concomitant]
  6. GRANISETRON [Concomitant]
  7. MESNA [Concomitant]

REACTIONS (2)
  - NEUTROPENIA [None]
  - THROMBOCYTOPENIA [None]
